FAERS Safety Report 4829813-9 (Version None)
Quarter: 2005Q4

REPORT INFORMATION
  Report Type: 
  Country: None (occurrence: None)
  Receive Date: 20051115
  Receipt Date: 20051115
  Transmission Date: 20060501
  Serious: No
  Sender: FDA-Public Use
  Company Number: None

PATIENT
  Sex: Male
  Weight: 131.5431 kg

DRUGS (4)
  1. SALSALATE 750 MG [Suspect]
     Indication: ARTHRALGIA
     Dosage: 750 MG TWICE DAILY PO
     Route: 048
     Dates: start: 20050506, end: 20050817
  2. LOVASTATIN [Concomitant]
  3. ROSIGLITAZONE [Concomitant]
  4. ASPIRIN [Concomitant]

REACTIONS (2)
  - BLOOD CREATININE INCREASED [None]
  - BLOOD POTASSIUM INCREASED [None]
